FAERS Safety Report 19949688 (Version 1)
Quarter: 2021Q4

REPORT INFORMATION
  Report Type: Spontaneous
  Country: PL (occurrence: PL)
  Receive Date: 20211013
  Receipt Date: 20211013
  Transmission Date: 20220303
  Serious: Yes (Other)
  Sender: FDA-Public Use
  Company Number: None

PATIENT
  Age: 41 Year
  Sex: Male
  Weight: 93 kg

DRUGS (2)
  1. AMOXICILLIN\CLAVULANATE POTASSIUM [Suspect]
     Active Substance: AMOXICILLIN\CLAVULANATE POTASSIUM
     Indication: Paranasal sinus inflammation
     Dosage: 1 DF, Q12H
     Route: 048
     Dates: start: 20180607, end: 20180615
  2. AMOXICILLIN [Suspect]
     Active Substance: AMOXICILLIN
     Indication: Paranasal sinus inflammation
     Dosage: 1000 MG, Q12H
     Route: 048
     Dates: start: 20180607, end: 20180615

REACTIONS (5)
  - Lymphadenopathy [Recovering/Resolving]
  - Dyspnoea [Recovering/Resolving]
  - Erythema multiforme [Recovering/Resolving]
  - Pruritus [Recovering/Resolving]
  - Rash [Recovering/Resolving]
